FAERS Safety Report 6217858-6 (Version None)
Quarter: 2009Q2

REPORT INFORMATION
  Report Type: 
  Country: None (occurrence: None)
  Receive Date: 20090608
  Receipt Date: 20090530
  Transmission Date: 20091009
  Serious: Yes (Other)
  Sender: FDA-Public Use
  Company Number: BR-ROCHE-635511

PATIENT
  Sex: Male

DRUGS (2)
  1. TAMIFLU [Suspect]
     Route: 048
  2. RIVOTRIL [Concomitant]
     Indication: PANIC DISORDER

REACTIONS (1)
  - CONVERSION DISORDER [None]
